FAERS Safety Report 7732474-2 (Version None)
Quarter: 2011Q3

REPORT INFORMATION
  Report Type: 
  Country: None (occurrence: None)
  Receive Date: 20110906
  Receipt Date: 20110823
  Transmission Date: 20111222
  Serious: Yes (Hospitalization)
  Sender: FDA-Public Use
  Company Number: US-ELI_LILLY_AND_COMPANY-US201107005602

PATIENT
  Sex: Female

DRUGS (4)
  1. TRAZODONE HCL [Concomitant]
  2. CYMBALTA [Suspect]
     Dosage: 60 MG, BID
  3. CYMBALTA [Suspect]
     Indication: DEPRESSION
     Dosage: 30 MG, UNKNOWN
     Dates: start: 20050101
  4. BUSPAR [Concomitant]

REACTIONS (5)
  - DYSPHAGIA [None]
  - FEEDING TUBE COMPLICATION [None]
  - WRONG TECHNIQUE IN DRUG USAGE PROCESS [None]
  - NEOPLASM MALIGNANT [None]
  - INCORRECT ROUTE OF DRUG ADMINISTRATION [None]
